FAERS Safety Report 25945692 (Version 4)
Quarter: 2025Q4

REPORT INFORMATION
  Report Type: Report from Study
  Country: US (occurrence: US)
  Receive Date: 20251021
  Receipt Date: 20251129
  Transmission Date: 20260117
  Serious: Yes (Hospitalization, Other)
  Sender: ABBVIE
  Company Number: US-ABBVIE-6498592

PATIENT
  Age: 66 Year
  Sex: Female
  Weight: 79.832 kg

DRUGS (3)
  1. SKYRIZI [Suspect]
     Active Substance: RISANKIZUMAB-RZAA
     Indication: Psoriatic arthropathy
     Dosage: DOSAGE FORM: SOLUTION FOR INJECTION IN PRE-FILLED PEN
     Route: 058
     Dates: start: 202102, end: 2023
  2. SKYRIZI [Suspect]
     Active Substance: RISANKIZUMAB-RZAA
     Dosage: OFF TO SKYRIZI ON JUN 2025 OR JUL 2025 FORM STRENGTH: 150 MILLIGRAM, DOSAGE FORM: SOLUTION FOR IN...
     Route: 058
     Dates: start: 20250101, end: 202506
  3. SKYRIZI [Suspect]
     Active Substance: RISANKIZUMAB-RZAA
     Dosage: FORM STRENGTH: 150 MILLIGRAM, DOSAGE FORM: SOLUTION FOR INJECTION IN PRE-FILLED PEN
     Route: 058
     Dates: start: 2025

REACTIONS (19)
  - Salivary gland cancer [Recovered/Resolved]
  - Dry skin [Recovering/Resolving]
  - Dry skin [Recovering/Resolving]
  - Madarosis [Recovering/Resolving]
  - Psoriasis [Recovering/Resolving]
  - Skin exfoliation [Recovering/Resolving]
  - Skin haemorrhage [Unknown]
  - Nodule [Recovered/Resolved]
  - Stress [Not Recovered/Not Resolved]
  - Pain in jaw [Recovered/Resolved]
  - Fibrosis [Recovered/Resolved]
  - Skin exfoliation [Recovering/Resolving]
  - Salivary gland mass [Recovered/Resolved]
  - Skin haemorrhage [Recovering/Resolving]
  - Hypoaesthesia oral [Recovering/Resolving]
  - Haemorrhage [Recovering/Resolving]
  - Tongue discomfort [Not Recovered/Not Resolved]
  - Pain in jaw [Recovered/Resolved]
  - Back pain [Recovering/Resolving]

NARRATIVE: CASE EVENT DATE: 20230101
